FAERS Safety Report 18138818 (Version 1)
Quarter: 2020Q3

REPORT INFORMATION
  Report Type: Spontaneous
  Country: US (occurrence: US)
  Receive Date: 20200811
  Receipt Date: 20200811
  Transmission Date: 20201103
  Serious: Yes (Other)
  Sender: FDA-Public Use
  Company Number: None

PATIENT
  Age: 69 Year
  Sex: Female
  Weight: 85.5 kg

DRUGS (2)
  1. NIFEDIPINE ER 60 MG TABLET [Suspect]
     Active Substance: NIFEDIPINE
     Indication: HYPERTENSION
     Route: 048
     Dates: start: 20160501, end: 20200811
  2. LOSARTAN POTASSIUM TABLETS, 25 MG [Suspect]
     Active Substance: LOSARTAN POTASSIUM

REACTIONS (6)
  - Wrong technique in product usage process [None]
  - Peripheral swelling [None]
  - Joint swelling [None]
  - Product dosage form issue [None]
  - Tremor [None]
  - Swelling [None]

NARRATIVE: CASE EVENT DATE: 20200128
